FAERS Safety Report 7790548-4 (Version None)
Quarter: 2011Q3

REPORT INFORMATION
  Report Type: 
  Country: None (occurrence: None)
  Receive Date: 20110930
  Receipt Date: 20110928
  Transmission Date: 20111222
  Serious: Yes (Hospitalization, Other)
  Sender: FDA-Public Use
  Company Number: BR-ABBOTT-10P-020-0686073-00

PATIENT
  Age: 45 Year
  Sex: Female

DRUGS (5)
  1. UNKNOWN CORTICOID [Concomitant]
     Indication: PRODUCT USED FOR UNKNOWN INDICATION
  2. METHOTREXATE [Concomitant]
     Indication: PRODUCT USED FOR UNKNOWN INDICATION
  3. HUMIRA [Suspect]
     Indication: RHEUMATOID ARTHRITIS
     Route: 058
  4. STREPTOMYCIN [Suspect]
     Indication: PERITONEAL TUBERCULOSIS
  5. TRIPLE DRUG THERAPY [Suspect]
     Indication: PERITONEAL TUBERCULOSIS

REACTIONS (9)
  - HYPERSENSITIVITY [None]
  - PERITONEAL TUBERCULOSIS [None]
  - DECREASED APPETITE [None]
  - APPENDICITIS [None]
  - PYREXIA [None]
  - LYMPHADENOPATHY [None]
  - LYMPH NODE TUBERCULOSIS [None]
  - HYPERHIDROSIS [None]
  - ASTHENIA [None]
